FAERS Safety Report 8746034 (Version 2)
Quarter: 2013Q3

REPORT INFORMATION
  Report Type: Report from Study
  Country: US (occurrence: US)
  Receive Date: 20120827
  Receipt Date: 20130701
  Transmission Date: 20140515
  Serious: Yes (Hospitalization)
  Sender: FDA-Public Use
  Company Number: US-JNJFOC-20110707508

PATIENT
  Age: 15 Year
  Sex: Male
  Weight: 45.81 kg

DRUGS (6)
  1. REMICADE [Suspect]
     Indication: INFLAMMATORY BOWEL DISEASE
     Route: 042
  2. REMICADE [Suspect]
     Indication: INFLAMMATORY BOWEL DISEASE
     Route: 042
     Dates: start: 20110629
  3. ANTIBIOTICS [Suspect]
     Indication: INFLAMMATORY BOWEL DISEASE
  4. AZATHIOPRINE [Concomitant]
  5. 5-ASA [Concomitant]
     Route: 048
  6. 5-ASA [Concomitant]
     Route: 054

REACTIONS (2)
  - Clostridium difficile infection [Recovered/Resolved]
  - Ascites [Not Recovered/Not Resolved]
